FAERS Safety Report 7029776-4 (Version None)
Quarter: 2010Q4

REPORT INFORMATION
  Report Type: 
  Country: None (occurrence: None)
  Receive Date: 20101001
  Receipt Date: 20100923
  Transmission Date: 20110411
  Serious: Yes (Hospitalization)
  Sender: FDA-Public Use
  Company Number: 2010090063

PATIENT
  Age: 95 Year
  Sex: Female
  Weight: 54.4 kg

DRUGS (10)
  1. TORSEMIDE [Suspect]
     Indication: HYPERTENSION
     Dosage: 20 MG (10 MG, 2 IN 1 D), ORAL
     Route: 048
  2. DIGITOXIN INJ [Suspect]
     Indication: TACHYARRHYTHMIA
     Dosage: 0.07 MG (0.07 MG, 1 IN 1 D), ORAL
     Route: 048
     Dates: end: 20081005
  3. DIGITOXIN INJ [Suspect]
     Indication: TACHYARRHYTHMIA
     Dosage: 0.07 MG (0.07 MG, 1 IN 1 D), ORAL
     Route: 048
     Dates: start: 20081006, end: 20081008
  4. BERLOSIN (METAMIZOLE SODIUM) [Concomitant]
  5. METHIZOL (THIAMAZOLE) [Concomitant]
  6. MELPERONE (MELPERONE) [Concomitant]
  7. NEXIUM [Concomitant]
  8. IBUPROFEN [Concomitant]
  9. CHLORALDURAT (CHLORAL HYDRATE) [Concomitant]
  10. ENOXAPARIN SODIUM [Concomitant]

REACTIONS (8)
  - ATRIAL FIBRILLATION [None]
  - BRADYARRHYTHMIA [None]
  - BRADYCARDIA [None]
  - BUNDLE BRANCH BLOCK RIGHT [None]
  - CARDIOACTIVE DRUG LEVEL DECREASED [None]
  - ELECTROCARDIOGRAM ST SEGMENT DEPRESSION [None]
  - HIP ARTHROPLASTY [None]
  - HYPOKALAEMIA [None]
